FAERS Safety Report 16877210 (Version 5)
Quarter: 2020Q3

REPORT INFORMATION
  Report Type: Spontaneous
  Country: FR (occurrence: FR)
  Receive Date: 20191002
  Receipt Date: 20200827
  Transmission Date: 20201102
  Serious: Yes (Hospitalization, Other)
  Sender: FDA-Public Use
  Company Number: FR-TEVA-2019-FR-1116115

PATIENT
  Age: 72 Year
  Sex: Female
  Weight: 75 kg

DRUGS (11)
  1. CHOLECALCIFEROL MYLAN [Concomitant]
     Dosage: DURING THE PERIOD FROM DEC?2016 TO SEPT?2018
  2. VALSARTAN/HYDROCHLOROTHIAZIDE MYLAN 160 MG/25 MG [Suspect]
     Active Substance: HYDROCHLOROTHIAZIDE\VALSARTAN
     Indication: HYPERTENSION
     Dosage: 1 DOSAGE FORM: VALSARTAN= 160 MG AND HYDROCHLOROTHIAZIDE = 25 MG
     Route: 065
     Dates: start: 201403, end: 201609
  3. LERCANIDIPINE TEVA SANTE 20 MG [Concomitant]
     Dosage: DURING THE PERIOD FROM DEC?2016 TO SEPT?2018
  4. CHOLECALCIFEROL ARROW [Concomitant]
     Dosage: DURING THE PERIOD FROM DEC?2016 TO SEPT?2018
  5. ATORVASTATINE PFIZER [Concomitant]
     Active Substance: ATORVASTATIN
     Dosage: DURING THE PERIOD FROM DEC?2016 TO SEPT?2018
  6. DOLIPRANE [Concomitant]
     Active Substance: ACETAMINOPHEN
     Dosage: DURING THE PERIOD FROM DEC?2016 TO SEPT?2018
  7. VALSARTAN/HYDROCHLOROTHIAZIDE TEVA 160 MG/ 25 MG [Suspect]
     Active Substance: HYDROCHLOROTHIAZIDE\VALSARTAN
     Indication: HYPERTENSION
     Dosage: 1 DOSAGE FORM: VALSARTAN= 160 MG AND HYDROCHLOROTHIAZIDE = 25 MG
     Route: 065
     Dates: start: 201504
  8. VALSARTAN/HYDROCHLOROTHIAZIDE TEVA 160 MG/ 25 MG [Suspect]
     Active Substance: HYDROCHLOROTHIAZIDE\VALSARTAN
     Dosage: 1 DOSAGE FORM: VALSARTAN= 160 MG AND HYDROCHLOROTHIAZIDE = 25 MG
     Route: 065
     Dates: start: 20160903, end: 20180918
  9. STRUCTOFLEX [Concomitant]
     Active Substance: GLUCOSAMINE
     Dosage: DURING THE PERIOD FROM DEC?2016 TO SEPT?2018
  10. CANDESARTAN HYDROCHLOROTHIAZIDE (NOS) [Concomitant]
  11. COKENZEN [Concomitant]
     Active Substance: CANDESARTAN CILEXETIL\HYDROCHLOROTHIAZIDE
     Dosage: SWITCHED FROM CANDESARTAN HYDROCHLOROTHIAZIDE (NOS) ON 02?DEC?2018

REACTIONS (4)
  - Gastrointestinal injury [Recovering/Resolving]
  - Ovarian cancer [Recovering/Resolving]
  - Product impurity [Unknown]
  - Malignant peritoneal neoplasm [Recovering/Resolving]

NARRATIVE: CASE EVENT DATE: 201809
